FAERS Safety Report 10039047 (Version 3)
Quarter: 2014Q3

REPORT INFORMATION
  Report Type: Not Available
  Country: FR (occurrence: FR)
  Receive Date: 20140326
  Receipt Date: 20140916
  Transmission Date: 20150326
  Serious: Yes (Hospitalization)
  Sender: FDA-Public Use
  Company Number: FR-PURDUE-GBR-2014-0017496

PATIENT
  Age: 66 Year
  Sex: Female

DRUGS (3)
  1. OXYCONTIN LP 15 MG, COMPRIME PELLICULE A LIBERATION PROLONGEE [Suspect]
     Active Substance: OXYCODONE HYDROCHLORIDE
     Indication: BACK PAIN
     Dosage: 15 MG, BID
     Route: 048
     Dates: end: 20130924
  2. TAXOTERE [Suspect]
     Active Substance: DOCETAXEL
     Indication: BREAST CANCER
     Dosage: 4 COURSES OF 100MG/M2
     Route: 042
     Dates: start: 20130617, end: 20130819
  3. NEULASTA [Concomitant]
     Active Substance: PEGFILGRASTIM
     Dosage: 48 HOURS AFTER TAXOTERE

REACTIONS (2)
  - Fall [Recovered/Resolved]
  - Balance disorder [Recovering/Resolving]

NARRATIVE: CASE EVENT DATE: 20130924
